FAERS Safety Report 9565465 (Version 1)
Quarter: 2013Q3

REPORT INFORMATION
  Report Type: Spontaneous
  Country: US (occurrence: US)
  Receive Date: 20130930
  Receipt Date: 20130930
  Transmission Date: 20140515
  Serious: Yes (Other)
  Sender: FDA-Public Use
  Company Number: US-PFIZER INC-2013277748

PATIENT
  Age: 56 Year
  Sex: Female
  Weight: 95.69 kg

DRUGS (1)
  1. PRISTIQ [Suspect]
     Indication: DEPRESSION
     Dosage: 100 MG, 1X/DAY
     Route: 048
     Dates: start: 201002, end: 20130921

REACTIONS (6)
  - Drug withdrawal syndrome [Unknown]
  - Hallucination, auditory [Unknown]
  - Tinnitus [Unknown]
  - Dizziness [Unknown]
  - Balance disorder [Unknown]
  - Crying [Unknown]
